FAERS Safety Report 20406055 (Version 2)
Quarter: 2022Q2

REPORT INFORMATION
  Report Type: Report from Study
  Country: US (occurrence: US)
  Receive Date: 20220131
  Receipt Date: 20220512
  Transmission Date: 20220720
  Serious: No
  Sender: FDA-Public Use
  Company Number: US-NOVARTISTESTPH-NVSC2022US020835

PATIENT
  Sex: Female

DRUGS (1)
  1. MAYZENT [Suspect]
     Active Substance: SIPONIMOD
     Indication: Multiple sclerosis relapse
     Dosage: 2 MG, QD
     Route: 048
     Dates: start: 20220127

REACTIONS (5)
  - Muscle spasms [Unknown]
  - Illness [Unknown]
  - Anal incontinence [Unknown]
  - Nausea [Unknown]
  - Diarrhoea [Unknown]
